FAERS Safety Report 6497762-9 (Version None)
Quarter: 2009Q4

REPORT INFORMATION
  Report Type: 
  Country: None (occurrence: None)
  Receive Date: 20091215
  Receipt Date: 20091203
  Transmission Date: 20100525
  Serious: Yes (Other)
  Sender: FDA-Public Use
  Company Number: US-BAYER-200941866NA

PATIENT
  Age: 26 Year
  Sex: Female
  Weight: 91 kg

DRUGS (2)
  1. MIRENA [Suspect]
     Indication: CONTRACEPTION
     Dosage: CONTINUOUS
     Route: 015
     Dates: start: 20090601
  2. PREDNISONE [Concomitant]

REACTIONS (5)
  - HYPOMENORRHOEA [None]
  - LIP SWELLING [None]
  - MENSTRUATION DELAYED [None]
  - PRURITUS [None]
  - URTICARIA [None]
